FAERS Safety Report 9495008 (Version 3)
Quarter: 2013Q3

REPORT INFORMATION
  Report Type: Spontaneous
  Country: US (occurrence: US)
  Receive Date: 20130903
  Receipt Date: 20130917
  Transmission Date: 20140515
  Serious: Yes (Hospitalization, Other)
  Sender: FDA-Public Use
  Company Number: US-SANOFI-AVENTIS-2013SA083683

PATIENT
  Age: 67 Year
  Sex: Male
  Weight: 88 kg

DRUGS (7)
  1. PLAVIX [Suspect]
     Indication: CEREBROVASCULAR ACCIDENT
     Route: 048
     Dates: start: 20110519, end: 20130613
  2. PLAVIX [Suspect]
     Indication: ARTERIAL OCCLUSIVE DISEASE
     Route: 048
     Dates: start: 20110519, end: 20130613
  3. LIPITOR [Suspect]
     Route: 048
     Dates: start: 20110519
  4. CLOPIDOGREL BISULFATE [Suspect]
     Indication: THROMBOSIS PROPHYLAXIS
     Dates: start: 2012
  5. ATORVASTATIN CALCIUM [Suspect]
     Dates: start: 2012
  6. LISINOPRIL [Concomitant]
     Indication: HYPERTENSION
  7. METOPROLOL [Concomitant]
     Indication: HYPERTENSION

REACTIONS (19)
  - Unevaluable event [Unknown]
  - Joint injury [Unknown]
  - Hernia [Unknown]
  - Carotid artery thrombosis [Unknown]
  - Therapeutic response decreased [Unknown]
  - Haemorrhage [Recovered/Resolved]
  - Tinnitus [Unknown]
  - Pain [Unknown]
  - Swelling [Unknown]
  - Rash generalised [Unknown]
  - Pruritus [Unknown]
  - Skin discolouration [Unknown]
  - Rash [Recovering/Resolving]
  - Rash macular [Recovering/Resolving]
  - Blister [Recovering/Resolving]
  - Urticaria [Recovering/Resolving]
  - Nausea [Unknown]
  - Eczema [Unknown]
  - Wrong technique in drug usage process [Unknown]
